FAERS Safety Report 7480503-6 (Version None)
Quarter: 2011Q2

REPORT INFORMATION
  Report Type: 
  Country: None (occurrence: None)
  Receive Date: 20110505
  Receipt Date: 20110421
  Transmission Date: 20111010
  Serious: Yes (Hospitalization)
  Sender: FDA-Public Use
  Company Number: 2011SP000487

PATIENT
  Age: 38 Year
  Sex: Female
  Weight: 77.9 kg

DRUGS (4)
  1. CHORIONIC GONADOTROPIN [Concomitant]
  2. FOLLISTIM AQ [Suspect]
     Indication: ASSISTED FERTILISATION
     Dosage: ; ONCE; SC
     Route: 058
     Dates: start: 20101203
  3. FOLLISTIM AQ [Suspect]
     Indication: ASSISTED FERTILISATION
     Dosage: ; ONCE; SC
     Route: 058
     Dates: start: 20101028, end: 20101030
  4. FOLIC ACID [Concomitant]

REACTIONS (19)
  - BLOOD POTASSIUM INCREASED [None]
  - PROTEIN TOTAL DECREASED [None]
  - BLOOD ALBUMIN DECREASED [None]
  - HYPERCOAGULATION [None]
  - HAEMOGLOBIN INCREASED [None]
  - CAROTID ARTERY THROMBOSIS [None]
  - PROTHROMBIN TIME PROLONGED [None]
  - BLOOD SODIUM DECREASED [None]
  - HAEMORRHAGIC TRANSFORMATION STROKE [None]
  - CEREBRAL ISCHAEMIA [None]
  - PREGNANCY [None]
  - DRUG EXPOSURE BEFORE PREGNANCY [None]
  - BLOOD CHLORIDE INCREASED [None]
  - DEEP VEIN THROMBOSIS [None]
  - HAEMATOCRIT INCREASED [None]
  - CEREBRAL INFARCTION [None]
  - OVARIAN HYPERSTIMULATION SYNDROME [None]
  - PLATELET COUNT INCREASED [None]
  - BLOOD UREA INCREASED [None]
